FAERS Safety Report 17579609 (Version 1)
Quarter: 2020Q1

REPORT INFORMATION
  Report Type: Spontaneous
  Country: US (occurrence: US)
  Receive Date: 20200325
  Receipt Date: 20200325
  Transmission Date: 20200409
  Serious: Yes (Death)
  Sender: FDA-Public Use
  Company Number: NVSC2020US082606

PATIENT
  Sex: Female

DRUGS (1)
  1. TAFINLAR [Suspect]
     Active Substance: DABRAFENIB MESYLATE
     Indication: LUNG CARCINOMA CELL TYPE UNSPECIFIED STAGE 0
     Dosage: 75 MG, BID
     Route: 048
     Dates: start: 201909

REACTIONS (3)
  - Hypertension [Fatal]
  - Asthma [Fatal]
  - Lung carcinoma cell type unspecified stage 0 [Fatal]
